FAERS Safety Report 17895015 (Version 1)
Quarter: 2020Q2

REPORT INFORMATION
  Report Type: Spontaneous
  Country: US (occurrence: US)
  Receive Date: 20200613
  Receipt Date: 20200613
  Transmission Date: 20200714
  Serious: Yes (Life-Threatening, Hospitalization, Disabling, Other)
  Sender: FDA-Public Use
  Company Number: None

PATIENT
  Age: 68 Year
  Sex: Female
  Weight: 65.25 kg

DRUGS (7)
  1. ZYPREXA [Suspect]
     Active Substance: OLANZAPINE
     Indication: BIPOLAR DISORDER
     Dosage: ?          QUANTITY:1 TABLET(S);?
     Route: 048
  2. REMERON [Concomitant]
     Active Substance: MIRTAZAPINE
  3. COGENTEN [Concomitant]
  4. LITHIUM. [Concomitant]
     Active Substance: LITHIUM
  5. TEGRETOL [Suspect]
     Active Substance: CARBAMAZEPINE
     Indication: SEIZURE
  6. ATIVAN [Concomitant]
     Active Substance: LORAZEPAM
  7. ZYPREXA [Concomitant]
     Active Substance: OLANZAPINE

REACTIONS (9)
  - Contusion [None]
  - Bedridden [None]
  - Dementia [None]
  - Mental disorder [None]
  - General physical condition abnormal [None]
  - Adverse drug reaction [None]
  - Dementia Alzheimer^s type [None]
  - Hypoaesthesia [None]
  - Pain [None]

NARRATIVE: CASE EVENT DATE: 20200613
